FAERS Safety Report 14138865 (Version 1)
Quarter: 2017Q4

REPORT INFORMATION
  Report Type: Spontaneous
  Country: US (occurrence: US)
  Receive Date: 20171027
  Receipt Date: 20171027
  Transmission Date: 20180321
  Serious: Yes (Other)
  Sender: FDA-Public Use
  Company Number: PHEH2017US034628

PATIENT
  Age: 9 Year
  Sex: Male

DRUGS (1)
  1. ILARIS [Suspect]
     Active Substance: CANAKINUMAB
     Indication: STILL^S DISEASE
     Dosage: UNK
     Route: 065
     Dates: start: 2016

REACTIONS (14)
  - Alveolar proteinosis [Unknown]
  - Arthritis [Unknown]
  - Pleural adhesion [Unknown]
  - Sinusitis [Unknown]
  - Fall [Unknown]
  - Pneumonia [Recovering/Resolving]
  - Pyrexia [Unknown]
  - Inflammation [Unknown]
  - Arterial disorder [Unknown]
  - Pallor [Unknown]
  - Hypertension [Unknown]
  - Cough [Unknown]
  - Pleural fibrosis [Unknown]
  - Rhinorrhoea [Unknown]

NARRATIVE: CASE EVENT DATE: 2016
